FAERS Safety Report 6491209-4 (Version None)
Quarter: 2009Q4

REPORT INFORMATION
  Report Type: 
  Country: None (occurrence: None)
  Receive Date: 20091211
  Receipt Date: 20091201
  Transmission Date: 20100525
  Serious: Yes (Other)
  Sender: FDA-Public Use
  Company Number: PHFR2007GB03004

PATIENT
  Sex: Male

DRUGS (6)
  1. CLOZARIL [Suspect]
     Indication: SCHIZOPHRENIA
     Dosage: UNK, UNK
     Route: 048
     Dates: start: 19940308, end: 20080317
  2. CLOZARIL [Suspect]
     Route: 048
     Dates: end: 20080409
  3. CLOZARIL [Suspect]
     Dates: end: 20080420
  4. OLANZAPINE [Concomitant]
  5. ALLOPURINOL [Concomitant]
  6. CHLORAMBUCIL [Concomitant]

REACTIONS (9)
  - CHRONIC LYMPHOCYTIC LEUKAEMIA [None]
  - HYPOPHAGIA [None]
  - INFECTION [None]
  - INSOMNIA [None]
  - LYMPHOCYTE COUNT INCREASED [None]
  - MENTAL DISORDER [None]
  - NEUTROPHIL COUNT DECREASED [None]
  - PARONYCHIA [None]
  - WHITE BLOOD CELL COUNT INCREASED [None]
